FAERS Safety Report 15359110 (Version 1)
Quarter: 2018Q3

REPORT INFORMATION
  Report Type: Spontaneous
  Country: US (occurrence: US)
  Receive Date: 20180906
  Receipt Date: 20180906
  Transmission Date: 20181010
  Serious: Yes (Other)
  Sender: FDA-Public Use
  Company Number: US-BIOGEN-2018BI00629841

PATIENT
  Sex: Female

DRUGS (1)
  1. TYSABRI [Suspect]
     Active Substance: NATALIZUMAB
     Indication: MULTIPLE SCLEROSIS
     Route: 065
     Dates: start: 20150326, end: 20151019

REACTIONS (6)
  - Cerebrovascular accident [Unknown]
  - Multiple sclerosis [Unknown]
  - Gastrointestinal haemorrhage [Unknown]
  - Hyperthyroidism [Unknown]
  - Brain neoplasm [Unknown]
  - Diabetes mellitus [Unknown]
